FAERS Safety Report 9854470 (Version 2)
Quarter: 2014Q1

REPORT INFORMATION
  Report Type: Spontaneous
  Country: US (occurrence: US)
  Receive Date: 20140130
  Receipt Date: 20140130
  Transmission Date: 20141002
  Serious: No
  Sender: FDA-Public Use
  Company Number: US-BIOGENIDEC-2013BI073225

PATIENT
  Age: 58 Year
  Sex: Female

DRUGS (21)
  1. TECFIDERA [Suspect]
     Indication: MULTIPLE SCLEROSIS
     Route: 048
     Dates: start: 20130712
  2. TECFIDERA [Suspect]
     Indication: MULTIPLE SCLEROSIS
     Route: 048
  3. TUMS [Concomitant]
  4. SIMVASTATIN [Concomitant]
  5. QUINAPRIL HYDROCHLORIDE [Concomitant]
  6. PROVIGIL [Concomitant]
  7. AMITRIPTYLINE [Concomitant]
  8. TOPAMAX [Concomitant]
  9. ACYCLOVIR [Concomitant]
  10. VITAMIN C [Concomitant]
  11. BABY ASPIRIN [Concomitant]
  12. GABAPENTIN [Concomitant]
  13. VESICARE [Concomitant]
  14. OXYCODONE [Concomitant]
  15. AVONEX [Concomitant]
     Indication: MULTIPLE SCLEROSIS
     Route: 030
     Dates: start: 19960119
  16. IMITREX [Concomitant]
  17. LIPITOR [Concomitant]
  18. NEURONTIN [Concomitant]
  19. VALTREX [Concomitant]
  20. VERAPAMIL [Concomitant]
  21. VITAMIN B6 [Concomitant]

REACTIONS (6)
  - Headache [Not Recovered/Not Resolved]
  - Migraine [Not Recovered/Not Resolved]
  - Eczema [Not Recovered/Not Resolved]
  - Dyspepsia [Unknown]
  - Nausea [Unknown]
  - Rash [Unknown]
